FAERS Safety Report 9312777 (Version 2)
Quarter: 2013Q3

REPORT INFORMATION
  Report Type: Spontaneous
  Country: US (occurrence: US)
  Receive Date: 20130528
  Receipt Date: 20130807
  Transmission Date: 20140515
  Serious: Yes (Death, Life-Threatening, Disabling)
  Sender: FDA-Public Use
  Company Number: US-009507513-1305USA013948

PATIENT
  Age: 23 Year
  Sex: Female
  Weight: 54.42 kg

DRUGS (1)
  1. IMPLANON [Suspect]
     Indication: CONTRACEPTION
     Dosage: 68 MG ROD 1 ROD UP TO 3 YEARS
     Dates: start: 201009

REACTIONS (7)
  - Completed suicide [Fatal]
  - Suicidal ideation [Unknown]
  - Hyperhidrosis [Unknown]
  - Anxiety [Unknown]
  - Fatigue [Unknown]
  - Hot flush [Unknown]
  - Depression [Unknown]
